FAERS Safety Report 12562005 (Version 1)
Quarter: 2016Q3

REPORT INFORMATION
  Report Type: Spontaneous
  Country: US (occurrence: US)
  Receive Date: 20160715
  Receipt Date: 20160715
  Transmission Date: 20161109
  Serious: Yes (Death, Life-Threatening, Hospitalization)
  Sender: FDA-Public Use
  Company Number: US-BRISTOL-MYERS SQUIBB COMPANY-BMS-2016-057062

PATIENT
  Age: 46 Year
  Sex: Male

DRUGS (1)
  1. OPDIVO [Suspect]
     Active Substance: NIVOLUMAB
     Indication: PERIPHERAL T-CELL LYMPHOMA UNSPECIFIED
     Route: 042
     Dates: start: 20160610, end: 20160610

REACTIONS (2)
  - Pneumonitis [Fatal]
  - Off label use [Unknown]

NARRATIVE: CASE EVENT DATE: 201606
